FAERS Safety Report 8354724-4 (Version None)
Quarter: 2012Q2

REPORT INFORMATION
  Report Type: 
  Country: None (occurrence: None)
  Receive Date: 20120511
  Receipt Date: 20120504
  Transmission Date: 20120825
  Serious: Yes (Hospitalization)
  Sender: FDA-Public Use
  Company Number: CA-GLAXOSMITHKLINE-A0973654A

PATIENT
  Sex: Male
  Weight: 68.2 kg

DRUGS (8)
  1. NITROGLYCERIN [Concomitant]
  2. SPIRIVA [Concomitant]
  3. ADVAIR DISKUS 100/50 [Suspect]
     Indication: CHRONIC OBSTRUCTIVE PULMONARY DISEASE
     Dosage: 1PUFF TWICE PER DAY
     Route: 055
     Dates: start: 20100101
  4. VENTOLIN [Concomitant]
     Route: 065
  5. PERCOCET [Concomitant]
  6. TECNAL C 1/2 [Concomitant]
  7. LYRICA [Concomitant]
  8. PRILOSEC [Concomitant]

REACTIONS (4)
  - EXOSTOSIS [None]
  - SURGERY [None]
  - WALKING AID USER [None]
  - CHRONIC OBSTRUCTIVE PULMONARY DISEASE [None]
